FAERS Safety Report 8116483-X (Version None)
Quarter: 2012Q1

REPORT INFORMATION
  Report Type: 
  Country: None (occurrence: None)
  Receive Date: 20120206
  Receipt Date: 20120201
  Transmission Date: 20120608
  Serious: Yes (Hospitalization)
  Sender: FDA-Public Use
  Company Number: BE-ABBOTT-12P-013-0900334-00

PATIENT
  Sex: Female

DRUGS (15)
  1. OMEPRAZOLE [Concomitant]
     Indication: GASTRIC DISORDER
     Dosage: 20MG DAILY DOSE
     Dates: start: 20111003
  2. ASPIRIN [Concomitant]
     Indication: PRODUCT USED FOR UNKNOWN INDICATION
     Dosage: 1 TAB IN THE MORNING
  3. TRAZODONE HCL [Concomitant]
     Indication: PRODUCT USED FOR UNKNOWN INDICATION
     Dosage: 0.5 TAB DAILY
  4. STEOVIT D3 [Concomitant]
     Indication: PRODUCT USED FOR UNKNOWN INDICATION
     Dosage: 1000/880, 1 TAB DAILY
  5. HUMIRA [Suspect]
     Indication: PRODUCT USED FOR UNKNOWN INDICATION
     Dates: start: 20090625
  6. PREDNISOLONE [Concomitant]
     Indication: PRODUCT USED FOR UNKNOWN INDICATION
     Dosage: 4MG DAILY DOSE
  7. BUMETANIDE [Concomitant]
     Indication: PRODUCT USED FOR UNKNOWN INDICATION
  8. IRBESARTAN [Concomitant]
     Indication: PRODUCT USED FOR UNKNOWN INDICATION
     Dosage: 300MG + 12,5MG DAILY
     Dates: start: 20111003
  9. METOPROLOL SUCCINATE [Concomitant]
     Indication: PRODUCT USED FOR UNKNOWN INDICATION
     Dosage: 100MG DAILY DOSE
     Dates: start: 20111003
  10. FOLIC ACID [Concomitant]
     Indication: PRODUCT USED FOR UNKNOWN INDICATION
  11. SIMVASTATIN [Concomitant]
     Indication: PRODUCT USED FOR UNKNOWN INDICATION
     Dosage: 40MG DAILY DOSE
  12. STAURODORM [Concomitant]
     Indication: PRODUCT USED FOR UNKNOWN INDICATION
     Dosage: 1 TAB DAILY DOSE
  13. FOSAVANCE [Concomitant]
     Indication: PRODUCT USED FOR UNKNOWN INDICATION
  14. OMEPRAZOLE [Concomitant]
     Indication: PROPHYLAXIS
  15. PANADOL RETARD [Concomitant]
     Indication: RHEUMATOID ARTHRITIS

REACTIONS (1)
  - BACK PAIN [None]
